FAERS Safety Report 4786116-9 (Version None)
Quarter: 2005Q3

REPORT INFORMATION
  Report Type: 
  Country: None (occurrence: None)
  Receive Date: 20050930
  Receipt Date: 20050930
  Transmission Date: 20060218
  Serious: No
  Sender: FDA-Public Use
  Company Number: None

PATIENT

DRUGS (1)
  1. TUBERCULIN PPD [Suspect]

REACTIONS (2)
  - DRUG HYPERSENSITIVITY [None]
  - HYPERSENSITIVITY [None]
